FAERS Safety Report 9294513 (Version 3)
Quarter: 2013Q4

REPORT INFORMATION
  Report Type: Spontaneous
  Country: NO (occurrence: NO)
  Receive Date: 20130517
  Receipt Date: 20131014
  Transmission Date: 20140711
  Serious: Yes (Death, Hospitalization)
  Sender: FDA-Public Use
  Company Number: NO-ROCHE-1217122

PATIENT
  Age: 59 Year
  Sex: Female

DRUGS (2)
  1. AVASTIN [Suspect]
     Indication: OVARIAN CANCER
     Route: 065
     Dates: start: 20121003, end: 20130313
  2. SANDOSTATIN LAR [Suspect]
     Indication: POST PROCEDURAL COMPLICATION
     Route: 058
     Dates: start: 20121106, end: 20130423

REACTIONS (6)
  - Pulmonary hypertension [Fatal]
  - Embolism [Fatal]
  - Ovarian cancer [Fatal]
  - Respiratory failure [Unknown]
  - Dyspnoea [Not Recovered/Not Resolved]
  - Incorrect route of drug administration [Unknown]
